FAERS Safety Report 9281115 (Version 3)
Quarter: 2013Q2

REPORT INFORMATION
  Report Type: Report from Study
  Country: CA (occurrence: CA)
  Receive Date: 20130509
  Receipt Date: 20130610
  Transmission Date: 20140414
  Serious: Yes (Other)
  Sender: FDA-Public Use
  Company Number: CA-EISAI INC-E7389-03784-SOL-CA

PATIENT
  Age: 45 Year
  Sex: Female
  Weight: 68 kg

DRUGS (11)
  1. HALAVEN [Suspect]
     Indication: BREAST CANCER METASTATIC
     Route: 041
     Dates: start: 20130418, end: 20130424
  2. HALAVEN [Suspect]
     Route: 041
     Dates: start: 20130509, end: 20130603
  3. XGEVA [Concomitant]
     Indication: BONE DENSITY ABNORMAL
  4. PROBIOTICS [Concomitant]
     Indication: PRODUCT USED FOR UNKNOWN INDICATION
     Dosage: UNKNOWN
     Route: 048
  5. VITAMIN C [Concomitant]
     Route: 042
     Dates: start: 20130420, end: 20130420
  6. MAGNESIUM [Concomitant]
     Route: 042
     Dates: start: 20130420, end: 20130420
  7. CALCIUM [Concomitant]
     Route: 042
     Dates: start: 20130420, end: 20130420
  8. MULTI-VITAMIN B [Concomitant]
     Route: 042
     Dates: start: 20130420, end: 20130420
  9. ADVIL [Concomitant]
     Indication: HEADACHE
     Route: 048
     Dates: start: 20130417, end: 20130418
  10. FISH OIL [Concomitant]
     Dates: end: 20130507
  11. VITAMIN D [Concomitant]
     Route: 048

REACTIONS (20)
  - Ascites [Unknown]
  - Ageusia [Unknown]
  - Urine abnormality [Unknown]
  - Hyperhidrosis [Unknown]
  - Chills [Recovering/Resolving]
  - Abdominal pain upper [Unknown]
  - Dysgeusia [Unknown]
  - Oral discomfort [Unknown]
  - Upper respiratory tract congestion [Unknown]
  - Night sweats [Recovering/Resolving]
  - Stomatitis [Unknown]
  - Decreased appetite [Unknown]
  - Pain in extremity [Recovering/Resolving]
  - Headache [Recovering/Resolving]
  - Cough [Unknown]
  - Fatigue [Unknown]
  - Neutrophil count decreased [Unknown]
  - Neuropathy peripheral [Unknown]
  - Asthenia [Recovering/Resolving]
  - Constipation [Not Recovered/Not Resolved]
